FAERS Safety Report 20955539 (Version 3)
Quarter: 2022Q2

REPORT INFORMATION
  Report Type: Spontaneous
  Country: FR (occurrence: FR)
  Receive Date: 20220614
  Receipt Date: 20220628
  Transmission Date: 20220720
  Serious: Yes (Death, Other)
  Sender: FDA-Public Use
  Company Number: FR-INCYTE CORPORATION-2022IN005760

PATIENT

DRUGS (2)
  1. TAFASITAMAB [Suspect]
     Active Substance: TAFASITAMAB
     Indication: Diffuse large B-cell lymphoma
     Dosage: 12 MG/KG OR 816 MG TOTAL DOSE
     Route: 065
     Dates: start: 20220301, end: 202203
  2. TAFASITAMAB [Suspect]
     Active Substance: TAFASITAMAB
     Dosage: 12 MG/KG OR 816 MG TOTAL DOSE
     Route: 065
     Dates: start: 202203, end: 20220309

REACTIONS (2)
  - Lymphoma [Fatal]
  - Disease progression [Fatal]
